FAERS Safety Report 17591249 (Version 4)
Quarter: 2022Q2

REPORT INFORMATION
  Report Type: Spontaneous
  Country: US (occurrence: US)
  Receive Date: 20200327
  Receipt Date: 20220415
  Transmission Date: 20220721
  Serious: No
  Sender: FDA-Public Use
  Company Number: US-PFIZER INC-2020124193

PATIENT
  Age: 42 Year
  Sex: Female

DRUGS (5)
  1. XELJANZ XR [Suspect]
     Active Substance: TOFACITINIB CITRATE
     Dosage: 11 MG
     Dates: start: 20191010
  2. XELJANZ XR [Suspect]
     Active Substance: TOFACITINIB CITRATE
     Dosage: 11 MG
     Dates: start: 20191201
  3. XELJANZ XR [Suspect]
     Active Substance: TOFACITINIB CITRATE
     Dosage: 11 MG
     Dates: start: 20200503
  4. XELJANZ XR [Suspect]
     Active Substance: TOFACITINIB CITRATE
     Dosage: 11 MG
     Dates: start: 20210613
  5. XELJANZ XR [Suspect]
     Active Substance: TOFACITINIB CITRATE
     Dosage: 11 MG
     Dates: start: 20210615

REACTIONS (11)
  - Loss of personal independence in daily activities [Unknown]
  - Gait disturbance [Unknown]
  - Fibromyalgia [Unknown]
  - Back disorder [Unknown]
  - Hypersensitivity [Unknown]
  - Pain [Unknown]
  - Nausea [Unknown]
  - Vomiting [Unknown]
  - Memory impairment [Unknown]
  - Migraine [Unknown]
  - Product dose omission in error [Unknown]
